FAERS Safety Report 23766634 (Version 1)
Quarter: 2024Q2

REPORT INFORMATION
  Report Type: Spontaneous
  Country: PL (occurrence: None)
  Receive Date: 20240422
  Receipt Date: 20240422
  Transmission Date: 20240716
  Serious: Yes (Hospitalization)
  Sender: FDA-Public Use
  Company Number: PL-Orion Corporation ORION PHARMA-TREX2024-0087

PATIENT
  Age: 51 Year
  Sex: Female

DRUGS (6)
  1. METHOTREXATE [Suspect]
     Active Substance: METHOTREXATE
     Indication: Polychondritis
  2. METHOTREXATE [Suspect]
     Active Substance: METHOTREXATE
     Dosage: DOSE EXCEEDING 15 MG/WEEK
  3. METHYLPREDNISOLONE [Suspect]
     Active Substance: METHYLPREDNISOLONE
     Indication: Polychondritis
  4. PREDNISOLONE [Suspect]
     Active Substance: PREDNISOLONE
     Indication: Polychondritis
  5. UNSPECIFIED INGREDIENT [Suspect]
     Active Substance: UNSPECIFIED INGREDIENT
     Indication: External ear inflammation
  6. NAPROXEN [Concomitant]
     Active Substance: NAPROXEN
     Indication: Polychondritis
     Dosage: HIGH DOSES

REACTIONS (5)
  - Drug ineffective [Unknown]
  - Polychondritis [Unknown]
  - Product use in unapproved indication [Unknown]
  - Drug ineffective for unapproved indication [Unknown]
  - Drug intolerance [Unknown]

NARRATIVE: CASE EVENT DATE: 20220401
